FAERS Safety Report 23411309 (Version 2)
Quarter: 2024Q1

REPORT INFORMATION
  Report Type: Report from Study
  Country: SE (occurrence: SE)
  Receive Date: 20240117
  Receipt Date: 20240124
  Transmission Date: 20240410
  Serious: Yes (Hospitalization)
  Sender: FDA-Public Use
  Company Number: SE-ROCHE-3482815

PATIENT
  Age: 62 Year
  Sex: Male
  Weight: 79.5 kg

DRUGS (25)
  1. LENALIDOMIDE [Suspect]
     Active Substance: LENALIDOMIDE
     Indication: Follicular lymphoma stage III
     Dosage: CYCLE 1
     Route: 048
     Dates: start: 20211222, end: 20220111
  2. LENALIDOMIDE [Suspect]
     Active Substance: LENALIDOMIDE
     Dosage: CYCLE 2
     Route: 048
     Dates: start: 20220119, end: 20220208
  3. LENALIDOMIDE [Suspect]
     Active Substance: LENALIDOMIDE
     Dosage: DAY 1 CYCLE 3
     Route: 048
     Dates: start: 20220216, end: 20220308
  4. LENALIDOMIDE [Suspect]
     Active Substance: LENALIDOMIDE
     Dosage: DAY 1 CYCLE 4
     Route: 048
     Dates: start: 20220316, end: 20220405
  5. LENALIDOMIDE [Suspect]
     Active Substance: LENALIDOMIDE
     Dosage: DAY 1 CYCLE 5
     Route: 048
     Dates: start: 20220413, end: 20220503
  6. LENALIDOMIDE [Suspect]
     Active Substance: LENALIDOMIDE
     Dosage: DAY 1 CYCLE 6
     Route: 048
     Dates: start: 20220511, end: 20220531
  7. LENALIDOMIDE [Suspect]
     Active Substance: LENALIDOMIDE
     Dosage: DAY 1 CYCLE 7
     Route: 048
     Dates: start: 20220608, end: 20220628
  8. LENALIDOMIDE [Suspect]
     Active Substance: LENALIDOMIDE
     Dosage: DAY 1 CYCLE 8
     Route: 048
     Dates: start: 20220706, end: 20220726
  9. LENALIDOMIDE [Suspect]
     Active Substance: LENALIDOMIDE
     Dosage: DAY 1 CYCLE 9
     Route: 048
     Dates: start: 20220803, end: 20220823
  10. LENALIDOMIDE [Suspect]
     Active Substance: LENALIDOMIDE
     Dosage: DAY 1 CYCLE 10
     Route: 048
     Dates: start: 20220831, end: 20220920
  11. LENALIDOMIDE [Suspect]
     Active Substance: LENALIDOMIDE
     Dosage: DAY 1 CYCLE 11
     Route: 048
     Dates: start: 20220928, end: 20221018
  12. LENALIDOMIDE [Suspect]
     Active Substance: LENALIDOMIDE
     Dosage: 15 MILLIGRAM (DAY 1 CYCLE 12)
     Route: 048
     Dates: start: 20221026, end: 20221115
  13. RITUXIMAB [Suspect]
     Active Substance: RITUXIMAB
     Indication: Follicular lymphoma stage III
     Dosage: C1D1-C1D15
     Route: 042
     Dates: start: 20211222, end: 20220105
  14. RITUXIMAB [Suspect]
     Active Substance: RITUXIMAB
     Dosage: C2D1-C5D1
     Route: 042
     Dates: start: 20220119, end: 20220413
  15. RITUXIMAB [Suspect]
     Active Substance: RITUXIMAB
     Dosage: 375 MILLIGRAM/SQ. METER
     Route: 042
     Dates: start: 20220413
  16. EPCORITAMAB [Suspect]
     Active Substance: EPCORITAMAB
     Indication: Follicular lymphoma stage III
     Dosage: C1D15-C2D22
     Route: 058
     Dates: start: 20220105, end: 20220209
  17. EPCORITAMAB [Suspect]
     Active Substance: EPCORITAMAB
     Dosage: C3D1
     Route: 058
     Dates: start: 20220216
  18. EPCORITAMAB [Suspect]
     Active Substance: EPCORITAMAB
     Dosage: C1D8
     Route: 058
     Dates: start: 20211229, end: 20211229
  19. EPCORITAMAB [Suspect]
     Active Substance: EPCORITAMAB
     Dosage: C1D1
     Route: 058
     Dates: start: 20211222, end: 20211222
  20. EPCORITAMAB [Suspect]
     Active Substance: EPCORITAMAB
     Dosage: 48 MILLIGRAM
     Route: 058
     Dates: start: 20231130
  21. PEPCID [Concomitant]
     Active Substance: FAMOTIDINE
     Dosage: UNK
     Route: 065
     Dates: start: 20220831
  22. OMEPRAZOLE [Concomitant]
     Active Substance: OMEPRAZOLE
     Dosage: UNK
     Route: 065
     Dates: start: 20220323
  23. DICLOFENAC SODIUM [Concomitant]
     Active Substance: DICLOFENAC\DICLOFENAC SODIUM
     Dosage: UNK
     Route: 065
     Dates: start: 20230215
  24. VALACYCLOVIR HYDROCHLORIDE [Concomitant]
     Active Substance: VALACYCLOVIR HYDROCHLORIDE
     Dosage: UNK
     Route: 065
     Dates: start: 20211221
  25. BACTRIM [Concomitant]
     Active Substance: SULFAMETHOXAZOLE\TRIMETHOPRIM
     Dosage: UNK
     Route: 065
     Dates: start: 20211221

REACTIONS (1)
  - COVID-19 [Recovering/Resolving]

NARRATIVE: CASE EVENT DATE: 20231205
